FAERS Safety Report 8536748-7 (Version None)
Quarter: 2012Q3

REPORT INFORMATION
  Report Type: 
  Country: None (occurrence: None)
  Receive Date: 20120718
  Receipt Date: 20120718
  Transmission Date: 20120928
  Serious: Yes (Hospitalization)
  Sender: FDA-Public Use
  Company Number: None

PATIENT
  Sex: Male
  Weight: 78.6 kg

DRUGS (1)
  1. CISPLATIN [Suspect]
     Dosage: 79 MG

REACTIONS (4)
  - DEHYDRATION [None]
  - FAILURE TO THRIVE [None]
  - MENTAL STATUS CHANGES [None]
  - DIARRHOEA [None]
